FAERS Safety Report 10453288 (Version 3)
Quarter: 2014Q4

REPORT INFORMATION
  Report Type: Spontaneous
  Country: GB (occurrence: GB)
  Receive Date: 20140915
  Receipt Date: 20141027
  Transmission Date: 20150528
  Serious: Yes (Death, Other)
  Sender: FDA-Public Use
  Company Number: GB-TEVA-507497ISR

PATIENT
  Age: 47 Year
  Sex: Male

DRUGS (36)
  1. FRAGMIN [Concomitant]
     Active Substance: DALTEPARIN SODIUM
  2. RITONAVIR. [Concomitant]
     Active Substance: RITONAVIR
  3. ONDANSETRON [Concomitant]
     Active Substance: ONDANSETRON
  4. ETRAVIRINE [Concomitant]
     Active Substance: ETRAVIRINE
  5. FENTANYL. [Suspect]
     Active Substance: FENTANYL
     Indication: PAIN
     Dosage: 888 MCG
     Route: 062
  6. METOCLOPRAMIDE. [Concomitant]
     Active Substance: METOCLOPRAMIDE
  7. LIDOCAINE HYDROCHLORIDE. [Concomitant]
     Active Substance: LIDOCAINE HYDROCHLORIDE
  8. CYCLIZINE [Concomitant]
     Active Substance: CYCLIZINE
  9. LORAZEPAM. [Concomitant]
     Active Substance: LORAZEPAM
  10. DIFFLAM [Concomitant]
     Active Substance: BENZYDAMINE HYDROCHLORIDE
  11. MIRTAZAPINE. [Concomitant]
     Active Substance: MIRTAZAPINE
  12. HALOPERIDOL. [Concomitant]
     Active Substance: HALOPERIDOL
  13. DULCOEASE [Suspect]
     Active Substance: DOCUSATE SODIUM
     Indication: CONSTIPATION
     Dosage: 500 MILLIGRAM DAILY;
     Route: 048
     Dates: start: 20140713
  14. GAVISCON [Concomitant]
     Active Substance: ALUMINUM HYDROXIDE\MAGNESIUM CARBONATE
  15. GTN [Concomitant]
     Active Substance: NITROGLYCERIN
  16. BUSCOPAN [Concomitant]
     Active Substance: BUTYLSCOPOLAMINE BROMIDE
  17. MAGNESIUM ALGINATE [Concomitant]
  18. OMEPRAZOLE. [Concomitant]
     Active Substance: OMEPRAZOLE
  19. GLYCERYL TRINITRATE [Concomitant]
     Active Substance: NITROGLYCERIN
  20. TENOFOVIR [Concomitant]
     Active Substance: TENOFOVIR
  21. ENTONOX [Concomitant]
     Active Substance: NITROUS OXIDE\OXYGEN
  22. CREON [Concomitant]
     Active Substance: PANCRELIPASE AMYLASE\PANCRELIPASE LIPASE\PANCRELIPASE PROTEASE
  23. LEVOMEPROMAZINE [Concomitant]
     Active Substance: LEVOMEPROMAZINE
  24. DEXAMETHASONE. [Concomitant]
     Active Substance: DEXAMETHASONE
  25. SENNA [Suspect]
     Active Substance: SENNA LEAF\SENNOSIDES\SENNOSIDES A AND B
     Indication: CONSTIPATION
     Dosage: 30 MILLIGRAM DAILY;
     Route: 048
     Dates: start: 20140716
  26. INSTILLAGEL [Concomitant]
     Active Substance: CHLORHEXIDINE GLUCONATE\LIDOCAINE HYDROCHLORIDE
  27. MIDAZOLAM [Concomitant]
     Active Substance: MIDAZOLAM\MIDAZOLAM HYDROCHLORIDE
  28. ZOPICLONE [Concomitant]
     Active Substance: ZOPICLONE
  29. ONDANSETRON [Concomitant]
     Active Substance: ONDANSETRON
  30. MITOMYCIN. [Concomitant]
     Active Substance: MITOMYCIN
  31. DARUNAVIR [Concomitant]
     Active Substance: DARUNAVIR
  32. CREON [Concomitant]
     Active Substance: PANCRELIPASE AMYLASE\PANCRELIPASE LIPASE\PANCRELIPASE PROTEASE
  33. PANCREATIN [Concomitant]
     Active Substance: PANCRELIPASE
  34. RALTEGRAVIR [Concomitant]
     Active Substance: RALTEGRAVIR
  35. RALTEGRAVIR [Concomitant]
     Active Substance: RALTEGRAVIR
  36. FLUOROURACIL. [Concomitant]
     Active Substance: FLUOROURACIL

REACTIONS (10)
  - Dry mouth [Unknown]
  - Death [Fatal]
  - Nausea [Unknown]
  - Agitation [Unknown]
  - Abdominal pain [Unknown]
  - Vomiting [Unknown]
  - Blood phosphorus decreased [Unknown]
  - Gastrooesophageal reflux disease [Unknown]
  - Chest pain [Unknown]
  - Urinary retention [Unknown]

NARRATIVE: CASE EVENT DATE: 20140809
